FAERS Safety Report 12693929 (Version 1)
Quarter: 2016Q3

REPORT INFORMATION
  Report Type: Spontaneous
  Country: GB (occurrence: GB)
  Receive Date: 20160829
  Receipt Date: 20160829
  Transmission Date: 20161109
  Serious: Yes (Other)
  Sender: FDA-Public Use
  Company Number: GB-PFIZER INC-2016401428

PATIENT
  Sex: Male

DRUGS (1)
  1. INLYTA [Suspect]
     Active Substance: AXITINIB
     Indication: RENAL CELL CARCINOMA
     Dosage: 5 MG, 2X/DAY
     Dates: start: 201304

REACTIONS (21)
  - Eructation [Unknown]
  - Dyspepsia [Recovered/Resolved]
  - Flatulence [Unknown]
  - Hypersensitivity [Unknown]
  - Disease progression [Unknown]
  - Anal fistula [Recovered/Resolved]
  - Abdominal distension [Unknown]
  - Diarrhoea [Unknown]
  - Palmar-plantar erythrodysaesthesia syndrome [Unknown]
  - Blood thyroid stimulating hormone increased [Unknown]
  - Thyroxine decreased [Unknown]
  - Lower respiratory tract infection [Recovering/Resolving]
  - Perineal infection [Recovered/Resolved]
  - Cystitis [Recovered/Resolved]
  - Hypertension [Unknown]
  - Anal abscess [Unknown]
  - Malaise [Unknown]
  - Fatigue [Unknown]
  - Scrotal swelling [Recovered/Resolved]
  - Viral infection [Unknown]
  - Renal cell carcinoma [Unknown]

NARRATIVE: CASE EVENT DATE: 201304
